FAERS Safety Report 9383544 (Version 2)
Quarter: 2013Q3

REPORT INFORMATION
  Report Type: Spontaneous
  Country: US (occurrence: US)
  Receive Date: 20130704
  Receipt Date: 20130717
  Transmission Date: 20140515
  Serious: No
  Sender: FDA-Public Use
  Company Number: US-PFIZER INC-2013196010

PATIENT
  Age: 78 Year
  Sex: Female
  Weight: 77.1 kg

DRUGS (2)
  1. LYRICA [Suspect]
     Indication: ARTHRITIS
     Dosage: 25 MG, 2X/DAY
     Route: 048
     Dates: start: 201304
  2. LYRICA [Suspect]
     Indication: FIBROMYALGIA

REACTIONS (4)
  - Off label use [Unknown]
  - Back pain [Not Recovered/Not Resolved]
  - Asthenia [Not Recovered/Not Resolved]
  - Drug ineffective [Unknown]
